FAERS Safety Report 9922050 (Version 2)
Quarter: 2014Q1

REPORT INFORMATION
  Report Type: Spontaneous
  Country: FR (occurrence: FR)
  Receive Date: 20140225
  Receipt Date: 20140228
  Transmission Date: 20141002
  Serious: Yes (Life-Threatening)
  Sender: FDA-Public Use
  Company Number: FR-009507513-1402FRA009050

PATIENT
  Age: 48 Year
  Sex: Male
  Weight: 97 kg

DRUGS (3)
  1. CANCIDAS [Suspect]
     Indication: PNEUMONIA INFLUENZAL
     Dosage: 1 DF, QD
     Route: 042
     Dates: start: 20140129, end: 20140131
  2. CEFOTAXIME SODIUM [Suspect]
     Indication: PNEUMONIA INFLUENZAL
     Dosage: 1 G, TID
     Route: 042
     Dates: start: 20140129, end: 20140201
  3. TRIATEC (RAMIPRIL) [Suspect]
     Indication: PNEUMONIA INFLUENZAL
     Dosage: 2 DF, QD
     Route: 048
     Dates: end: 20140204

REACTIONS (2)
  - Dysphagia [Recovered/Resolved]
  - Tongue oedema [Recovered/Resolved]
